FAERS Safety Report 7550837-5 (Version None)
Quarter: 2011Q2

REPORT INFORMATION
  Report Type: 
  Country: None (occurrence: None)
  Receive Date: 20110616
  Receipt Date: 20110614
  Transmission Date: 20111010
  Serious: No
  Sender: FDA-Public Use
  Company Number: US-PFIZER INC-2011130547

PATIENT
  Sex: Female
  Weight: 75.7 kg

DRUGS (5)
  1. LYRICA [Suspect]
     Indication: FIBROMYALGIA
     Dosage: 50 MG DAILY
     Route: 048
  2. LYRICA [Suspect]
     Dosage: 50 MG, 2X/DAY
     Route: 048
  3. LYRICA [Suspect]
     Dosage: 75 MG, 2X/DAY
     Route: 048
     Dates: start: 20110301, end: 20110501
  4. LYRICA [Suspect]
     Dosage: 100 MG, 2X/DAY
     Route: 048
     Dates: end: 20080101
  5. LYRICA [Suspect]
     Dosage: 75 MG, 2X/DAY
     Route: 048
     Dates: start: 20110613

REACTIONS (5)
  - TREMOR [None]
  - MUSCULAR WEAKNESS [None]
  - MUSCLE TWITCHING [None]
  - ANXIETY [None]
  - FEELING JITTERY [None]
